FAERS Safety Report 7351542-0 (Version None)
Quarter: 2011Q1

REPORT INFORMATION
  Report Type: 
  Country: None (occurrence: None)
  Receive Date: 20110314
  Receipt Date: 20110304
  Transmission Date: 20110831
  Serious: Yes (Hospitalization, Other)
  Sender: FDA-Public Use
  Company Number: US-RB-023363-11

PATIENT
  Sex: Male
  Weight: 3 kg

DRUGS (3)
  1. BENZODIAZEPINE [Suspect]
     Indication: PRODUCT USED FOR UNKNOWN INDICATION
     Dosage: DOSING DETAILS UNKNOWN
     Route: 064
     Dates: end: 20110228
  2. COCAINE [Suspect]
     Indication: PRODUCT USED FOR UNKNOWN INDICATION
     Dosage: DETAILS UNKNOWN
     Route: 064
     Dates: end: 20110228
  3. SUBUTEX [Suspect]
     Indication: DRUG ABUSE
     Dosage: DOSING DETAILS UNKNOWN
     Route: 064
     Dates: end: 20110228

REACTIONS (3)
  - DRUG EXPOSURE DURING PREGNANCY [None]
  - DRUG WITHDRAWAL SYNDROME NEONATAL [None]
  - CARDIAC MURMUR [None]
